FAERS Safety Report 10498694 (Version 3)
Quarter: 2014Q4

REPORT INFORMATION
  Report Type: Report from Study
  Country: US (occurrence: US)
  Receive Date: 20141006
  Receipt Date: 20141024
  Transmission Date: 20150528
  Serious: Yes (Hospitalization)
  Sender: FDA-Public Use
  Company Number: US-ACTELION-A-NJ2014-099595

PATIENT
  Age: 69 Year
  Sex: Female

DRUGS (5)
  1. ASPIRIN. [Concomitant]
     Active Substance: ASPIRIN
  2. ADCIRCA [Concomitant]
     Active Substance: TADALAFIL
  3. MACITENTAN [Suspect]
     Active Substance: MACITENTAN
     Indication: PULMONARY ARTERIAL HYPERTENSION
     Dosage: 10 MG, QD
     Route: 048
     Dates: start: 20140502
  4. TYVASO [Suspect]
     Active Substance: TREPROSTINIL
     Indication: PULMONARY ARTERIAL HYPERTENSION
     Dosage: 18 BREATHS/MIN, QID
     Route: 055
     Dates: start: 200911
  5. TYVASO [Suspect]
     Active Substance: TREPROSTINIL
     Dosage: 4 BREATHS/MIN, QID
     Route: 055
     Dates: start: 200911

REACTIONS (5)
  - Mesothelioma malignant [Unknown]
  - Pulmonary oedema [Unknown]
  - Aspiration pleural cavity [Not Recovered/Not Resolved]
  - Biopsy pleura [Unknown]
  - Pleural effusion [Unknown]

NARRATIVE: CASE EVENT DATE: 20140516
